FAERS Safety Report 9705755 (Version 1)
Quarter: 2013Q4

REPORT INFORMATION
  Report Type: Spontaneous
  Country: US (occurrence: US)
  Receive Date: 20131122
  Receipt Date: 20131122
  Transmission Date: 20140711
  Serious: No
  Sender: FDA-Public Use
  Company Number: US-GILEAD-2008-0017940

PATIENT
  Age: 72 Year
  Sex: Female

DRUGS (13)
  1. LETAIRIS [Suspect]
     Indication: PULMONARY ARTERIAL HYPERTENSION
     Route: 048
     Dates: start: 20080714
  2. COREG [Concomitant]
  3. IMDUR [Concomitant]
  4. TYLENOL [Concomitant]
  5. ASA [Concomitant]
  6. MULTIVITAMINS [Concomitant]
  7. VITAMIN B12 [Concomitant]
  8. POTASSIUM [Concomitant]
  9. XANAX [Concomitant]
  10. INSULIN [Concomitant]
  11. RANITIDINE [Concomitant]
  12. PROVENTIL [Concomitant]
  13. IBUPROFEN [Concomitant]

REACTIONS (3)
  - Chest discomfort [None]
  - Fluid retention [None]
  - Dyspnoea [None]
